FAERS Safety Report 7967000-6 (Version None)
Quarter: 2011Q4

REPORT INFORMATION
  Report Type: 
  Country: None (occurrence: None)
  Receive Date: 20111207
  Receipt Date: 20111207
  Transmission Date: 20120403
  Serious: No
  Sender: FDA-Public Use
  Company Number: None

PATIENT
  Age: 65 Year
  Sex: Male
  Weight: 99.5 kg

DRUGS (2)
  1. ROSUVASTATIN [Suspect]
     Indication: HYPERLIPIDAEMIA
     Dosage: MG PO
     Route: 048
     Dates: start: 20110126, end: 20111003
  2. ROSUVASTATIN [Suspect]
     Indication: CORONARY ARTERY DISEASE
     Dosage: MG PO
     Route: 048
     Dates: start: 20110126, end: 20111003

REACTIONS (1)
  - MYALGIA [None]
